FAERS Safety Report 6727584-2 (Version None)
Quarter: 2010Q2

REPORT INFORMATION
  Report Type: 
  Country: None (occurrence: None)
  Receive Date: 20100517
  Receipt Date: 20100511
  Transmission Date: 20101027
  Serious: Yes (Hospitalization)
  Sender: FDA-Public Use
  Company Number: RU-SANOFI-AVENTIS-2010SA027303

PATIENT
  Age: 51 Year
  Sex: Male
  Weight: 60 kg

DRUGS (6)
  1. AFLIBERCEPT [Suspect]
     Indication: NON-SMALL CELL LUNG CANCER METASTATIC
     Route: 042
     Dates: start: 20100205, end: 20100205
  2. AFLIBERCEPT [Suspect]
     Route: 042
     Dates: start: 20100415, end: 20100415
  3. DOCETAXEL [Suspect]
     Indication: NON-SMALL CELL LUNG CANCER METASTATIC
     Route: 042
     Dates: start: 20100205, end: 20100205
  4. DOCETAXEL [Suspect]
     Route: 042
     Dates: start: 20100415, end: 20100415
  5. OMEPRAZOLE [Concomitant]
     Dates: start: 20100204
  6. CORTICOSTEROIDS [Concomitant]

REACTIONS (1)
  - PANCREATITIS ACUTE [None]
